FAERS Safety Report 5534372-1 (Version None)
Quarter: 2007Q4

REPORT INFORMATION
  Report Type: 
  Country: None (occurrence: None)
  Receive Date: 20071120
  Receipt Date: 20070327
  Transmission Date: 20080405
  Serious: Yes (Hospitalization)
  Sender: FDA-Public Use
  Company Number: HQWYE005828MAR07

PATIENT
  Age: 40 Year
  Sex: Female
  Weight: 103.97 kg

DRUGS (2)
  1. ZOSYN [Suspect]
     Indication: ENTEROBACTER INFECTION
     Dosage: 4.5 G 1X PER 6 HR, INTRAVENOUS
     Route: 042
     Dates: start: 20070208, end: 20070226
  2. CANCIDAS [Suspect]
     Indication: FUNGAL INFECTION
     Dosage: 70 MG ONCE THEN 50 MG DAILY, INTRAVENOUS
     Route: 042
     Dates: start: 20070222, end: 20070228

REACTIONS (1)
  - TOXIC EPIDERMAL NECROLYSIS [None]
